FAERS Safety Report 21615109 (Version 9)
Quarter: 2023Q2

REPORT INFORMATION
  Report Type: Spontaneous
  Country: CA (occurrence: CA)
  Receive Date: 20221118
  Receipt Date: 20230525
  Transmission Date: 20230721
  Serious: No
  Sender: FDA-Public Use
  Company Number: CA-PFIZER INC-202201299223

PATIENT
  Age: 54 Year
  Sex: Female

DRUGS (1)
  1. ABRILADA [Suspect]
     Active Substance: ADALIMUMAB-AFZB
     Indication: Hidradenitis
     Dosage: 1 DF, WEEK0:160MG, WEEK2:80MG THEN 40MG EVERY WEEK STATING WEEK4
     Route: 058
     Dates: start: 20221111

REACTIONS (11)
  - Device difficult to use [Unknown]
  - Pain [Not Recovered/Not Resolved]
  - Device defective [Unknown]
  - Device malfunction [Unknown]
  - Device leakage [Unknown]
  - Accidental exposure to product [Unknown]
  - Exposure via skin contact [Unknown]
  - Device mechanical issue [Unknown]
  - Device issue [Unknown]
  - Drug dose omission by device [Unknown]
  - Memory impairment [Unknown]

NARRATIVE: CASE EVENT DATE: 20221111
